FAERS Safety Report 8394537-0 (Version None)
Quarter: 2012Q2

REPORT INFORMATION
  Report Type: 
  Country: None (occurrence: None)
  Receive Date: 20120530
  Receipt Date: 20120526
  Transmission Date: 20120825
  Serious: Yes (Hospitalization)
  Sender: FDA-Public Use
  Company Number: PHHY2012PK045193

PATIENT
  Age: 75 Year
  Sex: Female

DRUGS (2)
  1. CALCIUM [Concomitant]
     Indication: OSTEOPOROSIS
     Route: 048
  2. ZOLEDRONOC ACID [Suspect]
     Indication: OSTEOPOROSIS
     Dosage: 5 MG, ONCE A YEAR
     Route: 042
     Dates: start: 20110609

REACTIONS (3)
  - PAIN [None]
  - MENTAL STATUS CHANGES [None]
  - ABASIA [None]
